FAERS Safety Report 16072153 (Version 1)
Quarter: 2019Q1

REPORT INFORMATION
  Report Type: Spontaneous
  Country: US (occurrence: US)
  Receive Date: 20190314
  Receipt Date: 20190314
  Transmission Date: 20190418
  Serious: Yes (Hospitalization)
  Sender: FDA-Public Use
  Company Number: US-SA-2019SA064996

PATIENT
  Age: 83 Year
  Sex: Female

DRUGS (4)
  1. CORGARD [Concomitant]
     Active Substance: NADOLOL
  2. AVAPRO [Suspect]
     Active Substance: IRBESARTAN
     Indication: HYPERTENSION
     Dosage: 300 MG, QD
  3. AVAPRO [Suspect]
     Active Substance: IRBESARTAN
     Dosage: 150 MG, QD
  4. AVAPRO [Suspect]
     Active Substance: IRBESARTAN
     Dosage: 75 MG, QD

REACTIONS (2)
  - Hypertension [Unknown]
  - Product availability issue [Unknown]
